FAERS Safety Report 12776901 (Version 2)
Quarter: 2016Q4

REPORT INFORMATION
  Report Type: Report from Study
  Country: None (occurrence: US)
  Receive Date: 20160923
  Receipt Date: 20161209
  Transmission Date: 20170207
  Serious: Yes (Hospitalization, Other)
  Sender: FDA-Public Use
  Company Number: US-ABBVIE-16K-163-1732110-00

PATIENT
  Age: 65 Year
  Sex: Female
  Weight: 64.47 kg

DRUGS (6)
  1. DIVALPROEX SODIUM. [Suspect]
     Active Substance: DIVALPROEX SODIUM
     Indication: SEIZURE
     Route: 048
     Dates: start: 2013, end: 2015
  2. DIVALPROEX SODIUM. [Suspect]
     Active Substance: DIVALPROEX SODIUM
     Route: 048
     Dates: start: 20161004
  3. HUMIRA [Suspect]
     Active Substance: ADALIMUMAB
     Indication: SEIZURE
  4. DIVALPROEX SODIUM. [Suspect]
     Active Substance: DIVALPROEX SODIUM
     Route: 048
     Dates: start: 201609, end: 20161003
  5. HUMIRA [Suspect]
     Active Substance: ADALIMUMAB
     Indication: COLITIS ULCERATIVE
     Route: 058
     Dates: start: 20160822
  6. HUMIRA [Suspect]
     Active Substance: ADALIMUMAB
     Indication: CROHN^S DISEASE

REACTIONS (11)
  - Balance disorder [Not Recovered/Not Resolved]
  - Drug level increased [Recovering/Resolving]
  - Speech disorder [Recovering/Resolving]
  - Cardiac arrest [Recovered/Resolved]
  - Musculoskeletal chest pain [Recovered/Resolved]
  - Convulsions local [Recovered/Resolved]
  - Seizure [Recovered/Resolved]
  - Amnesia [Recovering/Resolving]
  - Seizure [Recovered/Resolved]
  - Chest pain [Recovered/Resolved]
  - Dyspnoea [Recovered/Resolved]

NARRATIVE: CASE EVENT DATE: 201609
